FAERS Safety Report 13493394 (Version 1)
Quarter: 2017Q2

REPORT INFORMATION
  Report Type: Spontaneous
  Country: US (occurrence: US)
  Receive Date: 20170427
  Receipt Date: 20170427
  Transmission Date: 20170830
  Serious: No
  Sender: FDA-Public Use
  Company Number: US-ROCHE-1354346

PATIENT
  Age: 85 Year
  Sex: Male

DRUGS (1)
  1. ERIVEDGE [Suspect]
     Active Substance: VISMODEGIB
     Indication: BASAL CELL CARCINOMA
     Route: 065
     Dates: start: 2013, end: 20140218

REACTIONS (5)
  - Dysgeusia [Unknown]
  - Fatigue [Unknown]
  - Metastatic malignant melanoma [Unknown]
  - Weight decreased [Unknown]
  - Alopecia [Unknown]
